FAERS Safety Report 23300298 (Version 2)
Quarter: 2023Q4

REPORT INFORMATION
  Report Type: Spontaneous
  Country: US (occurrence: US)
  Receive Date: 20231215
  Receipt Date: 20231221
  Transmission Date: 20240110
  Serious: No
  Sender: FDA-Public Use
  Company Number: US-JNJFOC-20231207807

PATIENT
  Age: 65 Year
  Sex: Male

DRUGS (1)
  1. TREMFYA [Suspect]
     Active Substance: GUSELKUMAB
     Indication: Psoriasis
     Route: 065

REACTIONS (5)
  - Device malfunction [Unknown]
  - Product dose omission issue [Unknown]
  - Psoriasis [Unknown]
  - Off label use [Unknown]
  - Needle issue [Unknown]

NARRATIVE: CASE EVENT DATE: 20231128
